FAERS Safety Report 9657405 (Version 2)
Quarter: 2013Q4

REPORT INFORMATION
  Report Type: Spontaneous
  Country: JP (occurrence: JP)
  Receive Date: 20131030
  Receipt Date: 20131030
  Transmission Date: 20140711
  Serious: Yes (Other)
  Sender: FDA-Public Use
  Company Number: JP-BRISTOL-MYERS SQUIBB COMPANY-19499169

PATIENT
  Sex: 0

DRUGS (1)
  1. BYETTA PEN DISPOSABLE [Suspect]
     Dosage: BYETTA SUBCUTANEOUS INJECTION 5 MICRO GRAM PEN 300
     Route: 058

REACTIONS (1)
  - Diabetic ketoacidosis [Unknown]
